FAERS Safety Report 19782980 (Version 3)
Quarter: 2021Q4

REPORT INFORMATION
  Report Type: Spontaneous
  Country: AU (occurrence: AU)
  Receive Date: 20210903
  Receipt Date: 20211004
  Transmission Date: 20220303
  Serious: Yes (Hospitalization, Other)
  Sender: FDA-Public Use
  Company Number: AU-BEH-2021135345

PATIENT
  Age: 55 Year
  Sex: Male
  Weight: 85.8 kg

DRUGS (2)
  1. PRIVIGEN [Suspect]
     Active Substance: HUMAN IMMUNOGLOBULIN G
     Indication: Immunodeficiency common variable
     Dosage: 35 GRAM, EVERY 28 DAYS
     Route: 042
     Dates: start: 20210819, end: 20210819
  2. PRIVIGEN [Suspect]
     Active Substance: HUMAN IMMUNOGLOBULIN G
     Dosage: 35 GRAM, EVERY 28 DAYS
     Route: 042
     Dates: start: 20210819, end: 20210819

REACTIONS (3)
  - Nervousness [Recovered/Resolved]
  - Feeling cold [Recovered/Resolved]
  - Body temperature increased [Recovered/Resolved]

NARRATIVE: CASE EVENT DATE: 20210819
